FAERS Safety Report 24101511 (Version 1)
Quarter: 2024Q3

REPORT INFORMATION
  Report Type: Spontaneous
  Country: NL (occurrence: NL)
  Receive Date: 20240717
  Receipt Date: 20240717
  Transmission Date: 20241017
  Serious: Yes (Hospitalization)
  Sender: JOHNSON AND JOHNSON
  Company Number: None

PATIENT
  Age: 72 Year
  Sex: Male
  Weight: 98 kg

DRUGS (17)
  1. DARZALEX [Suspect]
     Active Substance: DARATUMUMAB
     Indication: Plasma cell myeloma
     Dosage: 1800 MG PER DOSE, IN EXTENSIVE DOSING SCHEDULE
     Route: 065
     Dates: start: 20230601
  2. MOVICOLON [Concomitant]
     Active Substance: POLYETHYLENE GLYCOL 3350\POTASSIUM CHLORIDE\SODIUM BICARBONATE\SODIUM CHLORIDE
     Dosage: POWDER FOR DRINK
     Route: 065
  3. VALACYCLOVIR HYDROCHLORIDE [Concomitant]
     Active Substance: VALACYCLOVIR HYDROCHLORIDE
     Dosage: TABLET, 500 MG (MILLIGRAM)
     Route: 065
  4. CLEMASTINE [Concomitant]
     Active Substance: CLEMASTINE
     Dosage: TABLET, 1 MG (MILLIGRAM)
  5. COTRIMOXAZOLE [Concomitant]
     Active Substance: SULFAMETHOXAZOLE\TRIMETHOPRIM
     Indication: Product used for unknown indication
     Dosage: TABLET, 160/800 MG (MILLIGRAM)
     Route: 065
  6. BISOPROLOL [Concomitant]
     Active Substance: BISOPROLOL\BISOPROLOL FUMARATE
     Dosage: FILMOMHULDE TABLET, 7,5 MG (MILLIGRAM)
  7. GRANISETRON [Concomitant]
     Active Substance: GRANISETRON
     Dosage: TABLET, 2 MG (MILLIGRAM)
  8. ESOMEPRAZOLE [Concomitant]
     Active Substance: ESOMEPRAZOLE
     Dosage: MAAGSAPRESISTENTE CAPSULE, 40 MG (MILLIGRAM)
  9. METOCLOPRAMIDE [Concomitant]
     Active Substance: METOCLOPRAMIDE
     Dosage: TABLET, 10 MG (MILLIGRAM)
  10. FLECAINIDE [Concomitant]
     Active Substance: FLECAINIDE
     Dosage: RELEASE CAPSULE, 200 MG (MILLIGRAMS)
  11. FENTANYL [Concomitant]
     Active Substance: FENTANYL\FENTANYL CITRATE
     Dosage: PLEISTER, 25 UG (MICROGRAM) PER UUR
  12. AMLODIPINE [Concomitant]
     Active Substance: AMLODIPINE BESYLATE
     Dosage: CAPSULE, 2 MG (MILLIGRAM)
  13. PREDNISOLONE [Concomitant]
     Active Substance: PREDNISOLONE
     Dosage: CAPSULE, 20 MG (MILLIGRAM)
  14. ALKERAN [Concomitant]
     Active Substance: MELPHALAN
     Dosage: FILMCOATED TABLET, 2 MG (MILLIGRAM)
  15. EDOXABAN TOSYLATE [Concomitant]
     Active Substance: EDOXABAN TOSYLATE
     Dosage: TABLET, 60 MG (MILLIGRAM)
  16. DEXAMETHASONE [Concomitant]
     Active Substance: DEXAMETHASONE
     Dosage: TABLET, 20 MG (MILLIGRAM)
  17. FUROSEMIDE [Concomitant]
     Active Substance: FUROSEMIDE
     Dosage: 20 MG (MILLIGRAM)
     Route: 065

REACTIONS (4)
  - Ascites [Unknown]
  - Pulmonary oedema [Unknown]
  - Oedema peripheral [Unknown]
  - Oedema peripheral [Unknown]

NARRATIVE: CASE EVENT DATE: 20230101
